FAERS Safety Report 15383505 (Version 2)
Quarter: 2018Q4

REPORT INFORMATION
  Report Type: Spontaneous
  Country: PT (occurrence: PT)
  Receive Date: 20180913
  Receipt Date: 20181116
  Transmission Date: 20190204
  Serious: Yes (Hospitalization, Other)
  Sender: FDA-Public Use
  Company Number: PT-009507513-1809PRT003530

PATIENT
  Age: 66 Year
  Sex: Male

DRUGS (6)
  1. KEYTRUDA [Suspect]
     Active Substance: PEMBROLIZUMAB
     Dosage: UNK
     Dates: start: 2018
  2. ATORVASTATIN [Concomitant]
     Active Substance: ATORVASTATIN
  3. KEYTRUDA [Suspect]
     Active Substance: PEMBROLIZUMAB
     Indication: TRANSITIONAL CELL CARCINOMA
     Dosage: 200MG IV, CYCLES OF 21/21 DAYS
     Route: 042
     Dates: start: 20180216, end: 201806
  4. ZOMETA [Concomitant]
     Active Substance: ZOLEDRONIC ACID
     Dosage: UNK
     Dates: start: 20180112
  5. LEVOTHYROXINE SODIUM. [Concomitant]
     Active Substance: LEVOTHYROXINE SODIUM
     Indication: HYPOTHYROIDISM
  6. METFORMIN HYDROCHLORIDE (+) SITAGLIPTIN PHOSPHATE [Concomitant]
     Active Substance: METFORMIN HYDROCHLORIDE\SITAGLIPTIN PHOSPHATE

REACTIONS (14)
  - Immune-mediated adverse reaction [Recovering/Resolving]
  - Cholestasis [Unknown]
  - Pyrexia [Unknown]
  - Acute kidney injury [Recovered/Resolved]
  - Kidney fibrosis [Recovering/Resolving]
  - Lymphadenopathy [Unknown]
  - Asthenia [Unknown]
  - Chronic kidney disease [Recovering/Resolving]
  - Decreased appetite [Unknown]
  - Renal tubular necrosis [Recovering/Resolving]
  - Rectal ulcer [Unknown]
  - Renal impairment [Recovered/Resolved]
  - Tubulointerstitial nephritis [Recovering/Resolving]
  - Adverse event [Unknown]

NARRATIVE: CASE EVENT DATE: 2018
